FAERS Safety Report 8621919-1 (Version None)
Quarter: 2012Q3

REPORT INFORMATION
  Report Type: 
  Country: None (occurrence: None)
  Receive Date: 20120822
  Receipt Date: 20120822
  Transmission Date: 20120928
  Serious: Yes (Other)
  Sender: FDA-Public Use
  Company Number: None

PATIENT
  Sex: Female
  Weight: 51.2565 kg

DRUGS (2)
  1. VINORELBINE [Suspect]
     Indication: NON-SMALL CELL LUNG CANCER STAGE IV
  2. VINORELBINE TARTRATE [Suspect]
     Indication: NON-SMALL CELL LUNG CANCER STAGE IV

REACTIONS (3)
  - GROIN PAIN [None]
  - ARTHRALGIA [None]
  - NAUSEA [None]
